FAERS Safety Report 8176162-X (Version None)
Quarter: 2012Q1

REPORT INFORMATION
  Report Type: 
  Country: None (occurrence: None)
  Receive Date: 20120301
  Receipt Date: 20120222
  Transmission Date: 20120608
  Serious: Yes (Hospitalization)
  Sender: FDA-Public Use
  Company Number: GB-JNJFOC-20120203212

PATIENT
  Sex: Male
  Weight: 56 kg

DRUGS (4)
  1. AZATHIOPRINE [Concomitant]
  2. OMEPRAZOLE [Concomitant]
  3. REMICADE [Suspect]
     Indication: CROHN'S DISEASE
     Route: 042
     Dates: start: 20120201
  4. REMICADE [Suspect]
     Route: 042
     Dates: start: 20041028, end: 20090219

REACTIONS (2)
  - CROHN'S DISEASE [None]
  - FISTULA [None]
